FAERS Safety Report 5123549-5 (Version None)
Quarter: 2006Q3

REPORT INFORMATION
  Report Type: 
  Country: None (occurrence: None)
  Receive Date: 20060801
  Receipt Date: 20060410
  Transmission Date: 20061208
  Serious: Yes (Hospitalization)
  Sender: FDA-Public Use
  Company Number: MIN-00023

PATIENT
  Age: 19 Year
  Sex: Male
  Weight: 72.5755 kg

DRUGS (2)
  1. MINOCYCLINE HCL [Suspect]
     Indication: ACNE
     Dosage: 100 MG, DAILY, ORAL
     Route: 048
  2. ^TOPICAL FACIAL STUFF^ [Concomitant]

REACTIONS (1)
  - CONVULSION [None]
